FAERS Safety Report 9727414 (Version 2)
Quarter: 2013Q4

REPORT INFORMATION
  Report Type: Spontaneous
  Country: GB (occurrence: GB)
  Receive Date: 20131203
  Receipt Date: 20131203
  Transmission Date: 20140711
  Serious: Yes (Hospitalization)
  Sender: FDA-Public Use
  Company Number: GB-ABBVIE-13P-167-1138447-00

PATIENT
  Age: 65 Year
  Sex: Male

DRUGS (2)
  1. PROSTAP [Suspect]
     Indication: PROSTATE CANCER METASTATIC
     Route: 065
     Dates: start: 201304, end: 201304
  2. PROSTAP [Suspect]
     Route: 065
     Dates: start: 20130605, end: 20130605

REACTIONS (3)
  - Pneumonitis [Recovered/Resolved]
  - Hypoxia [Recovered/Resolved]
  - Dyspnoea [Recovered/Resolved]
